FAERS Safety Report 25949687 (Version 1)
Quarter: 2025Q4

REPORT INFORMATION
  Report Type: Spontaneous
  Country: US (occurrence: US)
  Receive Date: 20251022
  Receipt Date: 20251022
  Transmission Date: 20260118
  Serious: Yes (Other)
  Sender: SANDOZ
  Company Number: US-SANDOZ-SDZ2025US077510

PATIENT
  Age: 72 Year
  Sex: Male

DRUGS (22)
  1. AZITHROMYCIN [Suspect]
     Active Substance: AZITHROMYCIN
     Indication: Mycobacterium avium complex infection
     Dosage: 500 MG, TIW
     Route: 065
     Dates: start: 202505
  2. ETHAMBUTOL [Suspect]
     Active Substance: ETHAMBUTOL HYDROCHLORIDE
     Indication: Mycobacterium avium complex infection
     Dosage: 25 MG/KG/D, TIW
     Route: 065
     Dates: start: 202505
  3. RIFABUTIN [Suspect]
     Active Substance: RIFABUTIN
     Indication: Mycobacterium avium complex infection
     Dosage: HAD BEEN TAKING DAILY FOR THE LAST 2 MONTH
     Route: 065
     Dates: start: 2025
  4. RIFAMPIN [Suspect]
     Active Substance: RIFAMPIN
     Indication: Mycobacterium avium complex infection
     Dosage: UNK UNK, TIW
     Route: 065
     Dates: start: 202505
  5. ALBUTEROL SULFATE [Concomitant]
     Active Substance: ALBUTEROL SULFATE
     Indication: Dyspnoea
     Dosage: TAKE 2 PUFFS, (PROVENTIL HFA, VENTOLIN HFA, PROAIR HFA) 108 (90 BASE) MCG/ACT INHALER, DISPENSE 36 G
     Route: 055
     Dates: start: 20250528
  6. ALBUTEROL SULFATE [Concomitant]
     Active Substance: ALBUTEROL SULFATE
     Indication: Cough
  7. ARMOUR THYROID [Concomitant]
     Active Substance: THYROID, PORCINE
     Indication: Product used for unknown indication
     Dosage: 60 MG, QD, TAKE 60 MG BY MOUTH EVERY MORNING (60 MG)
     Route: 048
  8. BENADRYL [Concomitant]
     Active Substance: DIPHENHYDRAMINE HYDROCHLORIDE
     Indication: Hypersensitivity
     Dosage: 25 MG, Q8H
     Route: 048
  9. CALCIUM\VITAMIN D [Concomitant]
     Active Substance: CALCIUM\VITAMIN D
     Indication: Product used for unknown indication
     Dosage: QD, TAKE 2 TABLETS BY MOUTH DAILY.
     Route: 048
  10. FLONASE [Concomitant]
     Active Substance: FLUTICASONE PROPIONATE
     Indication: Product used for unknown indication
     Dosage: QD, 50 MCG/ACT, ADMINISTER 1 SPRAY INTO EACH NOSTRIL DAILY.
     Route: 045
     Dates: start: 20250528
  11. ISAVUCONAZOLE [Concomitant]
     Active Substance: ISAVUCONAZOLE
     Indication: Product used for unknown indication
     Dosage: COMPLETED 12 WEEKS
     Route: 065
  12. MAGNESIUM [Concomitant]
     Active Substance: MAGNESIUM
     Indication: Product used for unknown indication
     Dosage: 250 MG, QD (250 MG)
     Route: 048
  13. MIRALAX [Concomitant]
     Active Substance: POLYETHYLENE GLYCOL 3350
     Indication: Product used for unknown indication
     Dosage: 17 G, QD, MIX IN FLUID OF CHOICE - ORAL (17 GM/SCOOP BULK POWDER)
     Route: 048
  14. VITAMINS [Concomitant]
     Active Substance: VITAMINS
     Indication: Product used for unknown indication
     Dosage: QD, TAKE 1 TABLET BY MOUTH DAILY.
     Route: 048
  15. MYAMBUTOL [Concomitant]
     Active Substance: ETHAMBUTOL HYDROCHLORIDE
     Indication: Product used for unknown indication
     Dosage: TAKE 3 TABLETS BY MOUTH, TIW (400 MG)
     Route: 048
     Dates: start: 20251009
  16. MYAMBUTOL [Concomitant]
     Active Substance: ETHAMBUTOL HYDROCHLORIDE
     Dosage: TAKE 3 TABLETS BY MOUTH, TIW (400 MG)
     Route: 048
     Dates: start: 20251009
  17. RIFABUTIN [Concomitant]
     Active Substance: RIFABUTIN
     Indication: Product used for unknown indication
     Dosage: 300 MG, QD
     Route: 048
  18. RIFABUTIN [Concomitant]
     Active Substance: RIFABUTIN
     Dosage: TAKE 2 CAPSULES, TIW (150 MG)
     Route: 048
     Dates: start: 20251014
  19. PRILOSEC [Concomitant]
     Active Substance: OMEPRAZOLE MAGNESIUM
     Indication: Product used for unknown indication
     Dosage: 10 MG, QD, 10 MG DELAYED RELEASE CAPSULE
     Route: 048
  20. Saw palmetto berry [Concomitant]
     Indication: Product used for unknown indication
     Dosage: QD, TAKE 1 DOSE BY MOUTH DAILY.
     Route: 048
  21. MENAQUINONE 6 [Concomitant]
     Active Substance: MENAQUINONE 6
     Indication: Product used for unknown indication
     Dosage: 180 UG
     Route: 048
  22. ZITHROMAX [Concomitant]
     Active Substance: AZITHROMYCIN DIHYDRATE
     Indication: Product used for unknown indication
     Dosage: TIW, TAKE 1 TABLET, START AZITHROMYCIN FIRST, THEN ADD ETHAMBUTOL IN A FEW DAYS AND THEN ADD RIFAMPI
     Route: 048
     Dates: start: 20251009

REACTIONS (4)
  - Bronchiectasis [Unknown]
  - Thrombocytopenia [Recovering/Resolving]
  - Leukopenia [Recovered/Resolved]
  - Chest discomfort [Unknown]

NARRATIVE: CASE EVENT DATE: 20250101
